FAERS Safety Report 10211074 (Version 1)
Quarter: 2014Q2

REPORT INFORMATION
  Report Type: Spontaneous
  Country: US (occurrence: None)
  Receive Date: 20140530
  Receipt Date: 20140530
  Transmission Date: 20141212
  Serious: No
  Sender: FDA-Public Use
  Company Number: None

PATIENT
  Age: 80 Year
  Sex: Female

DRUGS (17)
  1. CAPECITABINE TEVA 500MG [Suspect]
     Indication: COLON CANCER
     Route: 048
     Dates: start: 20140415
  2. XELODA 500 MG [Suspect]
     Route: 048
     Dates: start: 20140218, end: 20140514
  3. CARVEDIOLOL [Concomitant]
  4. LISINOPRIL [Concomitant]
  5. ASPIRIN [Concomitant]
  6. METFORMIN [Concomitant]
  7. SIMVASTATIN [Concomitant]
  8. SLO-MAG [Concomitant]
  9. LASIX [Concomitant]
  10. CALCIUM [Concomitant]
  11. FISH OIL [Concomitant]
  12. FOLIC ACID [Concomitant]
  13. VITAMIN B [Concomitant]
  14. VITAMIN C [Concomitant]
  15. VITAMIN D [Concomitant]
  16. PLAVIX [Concomitant]
  17. ELIQUIS [Concomitant]

REACTIONS (1)
  - Diarrhoea [None]
